FAERS Safety Report 5134304-4 (Version None)
Quarter: 2006Q4

REPORT INFORMATION
  Report Type: 
  Country: None (occurrence: None)
  Receive Date: 20060831
  Receipt Date: 20060713
  Transmission Date: 20070319
  Serious: No
  Sender: FDA-Public Use
  Company Number: 2006-BP-07402BP

PATIENT
  Sex: Female
  Weight: 54.55 kg

DRUGS (4)
  1. SPIRIVA [Suspect]
     Indication: CHRONIC OBSTRUCTIVE PULMONARY DISEASE
     Dosage: 18 MCG (18 MCG,1 IN 1 D),IH
     Dates: start: 20051121, end: 20060624
  2. THEO-DUR [Concomitant]
  3. ESTRADIOL [Concomitant]
  4. ASPIRIN [Concomitant]

REACTIONS (4)
  - DIZZINESS [None]
  - DRY MOUTH [None]
  - PYREXIA [None]
  - URINARY TRACT INFECTION [None]
